FAERS Safety Report 18724376 (Version 1)
Quarter: 2021Q1

REPORT INFORMATION
  Report Type: Spontaneous
  Country: US (occurrence: US)
  Receive Date: 20210111
  Receipt Date: 20210111
  Transmission Date: 20210419
  Serious: No
  Sender: FDA-Public Use
  Company Number: US-PFIZER INC-2020123550

PATIENT
  Age: 78 Year
  Sex: Female

DRUGS (1)
  1. RETACRIT [Suspect]
     Active Substance: EPOETIN ALFA-EPBX
     Indication: MONOCLONAL GAMMOPATHY
     Dosage: 4 ML

REACTIONS (2)
  - Off label use [Unknown]
  - Malaise [Unknown]
